FAERS Safety Report 17025158 (Version 2)
Quarter: 2019Q4

REPORT INFORMATION
  Report Type: Spontaneous
  Country: IT (occurrence: IT)
  Receive Date: 20191113
  Receipt Date: 20191121
  Transmission Date: 20200122
  Serious: Yes (Hospitalization)
  Sender: FDA-Public Use
  Company Number: IT-PFIZER INC-2019487956

PATIENT
  Age: 11 Year
  Sex: Female
  Weight: 57 kg

DRUGS (6)
  1. DINTOINA [Suspect]
     Active Substance: PHENYTOIN SODIUM
     Indication: PARTIAL SEIZURES
     Dosage: 150 MG, 1X/DAY
     Route: 048
     Dates: start: 20190101, end: 20190926
  2. ZARONTIN [Suspect]
     Active Substance: ETHOSUXIMIDE
     Dosage: 1 G, 1X/DAY
     Route: 048
  3. TOPAMAX [Suspect]
     Active Substance: TOPIRAMATE
     Indication: PARTIAL SEIZURES
     Dosage: 2 DF, 1X/DAY
     Route: 048
     Dates: start: 20190101, end: 20190926
  4. DEPAKIN [Suspect]
     Active Substance: VALPROATE SODIUM
     Indication: PARTIAL SEIZURES
     Dosage: 2 DF, 1X/DAY
     Route: 048
     Dates: start: 20190919, end: 20190926
  5. FRISIUM [Concomitant]
     Active Substance: CLOBAZAM
     Dosage: 2 DF, 1X/DAY
  6. KETOPROFEN. [Concomitant]
     Active Substance: KETOPROFEN
     Dosage: UNK

REACTIONS (2)
  - Seizure [Unknown]
  - Drug ineffective [Unknown]

NARRATIVE: CASE EVENT DATE: 20190926
